FAERS Safety Report 11777332 (Version 1)
Quarter: 2015Q4

REPORT INFORMATION
  Report Type: Report from Study
  Country: US (occurrence: US)
  Receive Date: 20151125
  Receipt Date: 20151125
  Transmission Date: 20160304
  Serious: Yes (Hospitalization)
  Sender: FDA-Public Use
  Company Number: US-GILEAD-2015-0184132

PATIENT
  Age: 61 Year
  Sex: Male

DRUGS (1)
  1. RANOLAZINE [Suspect]
     Active Substance: RANOLAZINE
     Indication: ANGINA PECTORIS
     Dosage: 1000 MG, UNK
     Route: 048

REACTIONS (6)
  - Chest pain [Unknown]
  - Hypersensitivity [Unknown]
  - Dizziness [Unknown]
  - Memory impairment [Unknown]
  - Pain in extremity [Unknown]
  - Speech disorder [Unknown]

NARRATIVE: CASE EVENT DATE: 201510
